FAERS Safety Report 18326155 (Version 1)
Quarter: 2020Q3

REPORT INFORMATION
  Report Type: Spontaneous
  Country: JP (occurrence: JP)
  Receive Date: 20200929
  Receipt Date: 20200929
  Transmission Date: 20201103
  Serious: Yes (Other)
  Sender: FDA-Public Use
  Company Number: JP-SA-2020SA266432

PATIENT

DRUGS (3)
  1. URSO [Concomitant]
     Active Substance: URSODIOL
     Dosage: UNK
     Route: 065
  2. LEVOCETIRIZINE [Suspect]
     Active Substance: LEVOCETIRIZINE
     Indication: PRODUCT USED FOR UNKNOWN INDICATION
     Dosage: 5 MG, QD
     Route: 048
     Dates: start: 20200910, end: 20200911
  3. FENOFIBRATE. [Concomitant]
     Active Substance: FENOFIBRATE
     Dosage: UNK
     Route: 065
     Dates: start: 20200910

REACTIONS (3)
  - Product substitution issue [Unknown]
  - Rash erythematous [Unknown]
  - Swelling [Unknown]

NARRATIVE: CASE EVENT DATE: 20200911
